FAERS Safety Report 9304873 (Version 1)
Quarter: 2013Q2

REPORT INFORMATION
  Report Type: Report from Study
  Country: US (occurrence: US)
  Receive Date: 20130523
  Receipt Date: 20130523
  Transmission Date: 20140414
  Serious: Yes (Hospitalization)
  Sender: FDA-Public Use
  Company Number: US-MYLANLABS-2013S1010608

PATIENT
  Sex: Female

DRUGS (2)
  1. NEVIRAPINE [Suspect]
     Indication: HIV INFECTION
     Dosage: TWICE DAILY
     Route: 065
  2. COTRIMOXAZOLE [Concomitant]
     Route: 065

REACTIONS (3)
  - Rash maculo-papular [Recovered/Resolved]
  - Oral mucosal erythema [Unknown]
  - Skin toxicity [None]
